FAERS Safety Report 6615439-3 (Version None)
Quarter: 2010Q1

REPORT INFORMATION
  Report Type: 
  Country: None (occurrence: None)
  Receive Date: 20100305
  Receipt Date: 20091204
  Transmission Date: 20100710
  Serious: No
  Sender: FDA-Public Use
  Company Number: A0838819A

PATIENT
  Sex: Male
  Weight: 95.5 kg

DRUGS (5)
  1. REQUIP [Suspect]
     Route: 048
  2. EFFEXOR [Concomitant]
  3. KLONOPIN [Concomitant]
  4. REMERON [Concomitant]
  5. PHENTERMINE [Concomitant]
     Dates: start: 20040301

REACTIONS (1)
  - ADVERSE EVENT [None]
